FAERS Safety Report 8884106 (Version 2)
Quarter: 2012Q4

REPORT INFORMATION
  Report Type: Report from Study
  Country: CA (occurrence: CA)
  Receive Date: 20121102
  Receipt Date: 20121107
  Transmission Date: 20130627
  Serious: Yes (Hospitalization)
  Sender: FDA-Public Use
  Company Number: CA-ROCHE-1149347

PATIENT
  Sex: Female
  Weight: 49.94 kg

DRUGS (13)
  1. RITUXIMAB [Suspect]
     Indication: SYSTEMIC LUPUS ERYTHEMATOSUS
     Route: 042
     Dates: start: 20090706
  2. RITUXIMAB [Suspect]
     Indication: CUTANEOUS LUPUS ERYTHEMATOSUS
  3. ACTONEL [Concomitant]
  4. FOLIC ACID [Concomitant]
  5. LACIDIPINE [Concomitant]
  6. ESTROGEN [Concomitant]
  7. CITALOPRAM [Concomitant]
  8. RAMIPRIL [Concomitant]
     Indication: BLOOD PRESSURE
  9. PREDNISONE [Concomitant]
  10. VITAMIN D [Concomitant]
  11. COD LIVER OIL [Concomitant]
  12. CALCIUM [Concomitant]
  13. MULTIVITAMIN [Concomitant]

REACTIONS (1)
  - Vaginal discharge [Recovered/Resolved]
